FAERS Safety Report 4548235-1 (Version None)
Quarter: 2004Q4

REPORT INFORMATION
  Report Type: 
  Country: None (occurrence: None)
  Receive Date: 20041220
  Receipt Date: 20031029
  Transmission Date: 20050328
  Serious: Yes (Hospitalization)
  Sender: FDA-Public Use
  Company Number: US_980605108

PATIENT
  Age: 53 Year
  Sex: Female

DRUGS (4)
  1. HUMULIN R [Suspect]
     Indication: DIABETES MELLITUS
  2. HUMULIN L [Suspect]
     Indication: DIABETES MELLITUS
  3. HUMULIN-HUMAN INSULIN (RDNA) (HU [Suspect]
     Indication: DIABETES MELLITUS
  4. LENTE ILETIN II (PORK) [Suspect]
     Indication: DIABETES MELLITUS
     Dates: start: 20001101

REACTIONS (12)
  - ANAPHYLACTIC REACTION [None]
  - ARTHRITIS [None]
  - BLOOD PRESSURE DECREASED [None]
  - CHEST DISCOMFORT [None]
  - EYE SWELLING [None]
  - GLAUCOMA [None]
  - HEART RATE DECREASED [None]
  - HYPERSENSITIVITY [None]
  - NAUSEA [None]
  - PNEUMONIA [None]
  - RASH [None]
  - VISUAL ACUITY REDUCED [None]
